FAERS Safety Report 16120439 (Version 2)
Quarter: 2019Q2

REPORT INFORMATION
  Report Type: Spontaneous
  Country: DE (occurrence: DE)
  Receive Date: 20190326
  Receipt Date: 20190425
  Transmission Date: 20190711
  Serious: Yes (Other)
  Sender: FDA-Public Use
  Company Number: DE-AMGEN-DEUSP2019047749

PATIENT
  Age: 51 Year
  Sex: Female

DRUGS (3)
  1. METOPROLOL SUCCINATE. [Concomitant]
     Active Substance: METOPROLOL SUCCINATE
     Indication: MIGRAINE PROPHYLAXIS
     Dosage: 47.5 MG, QD
     Route: 048
     Dates: start: 2017
  2. AIMOVIG [Suspect]
     Active Substance: ERENUMAB-AOOE
     Indication: MIGRAINE
     Dosage: 70 MG, EVERY 28 DAYS
     Route: 058
     Dates: start: 20181127, end: 20190224
  3. ATORVASTATIN [Concomitant]
     Active Substance: ATORVASTATIN
     Indication: PRODUCT USED FOR UNKNOWN INDICATION
     Dosage: 10 MG, QD
     Route: 048
     Dates: start: 201806

REACTIONS (8)
  - Cardiac disorder [Recovering/Resolving]
  - Palpitations [Recovering/Resolving]
  - Sense of oppression [Recovering/Resolving]
  - Ventricular extrasystoles [Recovering/Resolving]
  - Heart rate abnormal [Recovering/Resolving]
  - Chest pain [Recovering/Resolving]
  - Angina pectoris [Recovering/Resolving]
  - Arteriospasm coronary [Recovering/Resolving]

NARRATIVE: CASE EVENT DATE: 20190121
